FAERS Safety Report 19505949 (Version 2)
Quarter: 2021Q3

REPORT INFORMATION
  Report Type: Spontaneous
  Country: US (occurrence: US)
  Receive Date: 20210708
  Receipt Date: 20210715
  Transmission Date: 20211014
  Serious: No
  Sender: FDA-Public Use
  Company Number: US-UNITED THERAPEUTICS-UNT-2021-010188

PATIENT
  Sex: Female
  Weight: 91.16 kg

DRUGS (10)
  1. ORENITRAM [Suspect]
     Active Substance: TREPROSTINIL
     Indication: PULMONARY ARTERIAL HYPERTENSION
     Dosage: UNK
     Route: 048
  2. ORENITRAM [Suspect]
     Active Substance: TREPROSTINIL
     Indication: PULMONARY ARTERIAL HYPERTENSION
     Dosage: UNK
     Route: 048
  3. ORENITRAM [Suspect]
     Active Substance: TREPROSTINIL
     Indication: PULMONARY ARTERIAL HYPERTENSION
     Dosage: UNK
     Route: 048
  4. OPSUMIT [Concomitant]
     Active Substance: MACITENTAN
     Indication: PULMONARY ARTERIAL HYPERTENSION
     Dosage: 10 MG, QD
     Route: 048
  5. ORENITRAM [Suspect]
     Active Substance: TREPROSTINIL
     Dosage: 18.25 MG, Q8H
     Route: 048
  6. ORENITRAM [Suspect]
     Active Substance: TREPROSTINIL
     Dosage: 19 MG, Q8H
     Route: 048
  7. ORENITRAM [Suspect]
     Active Substance: TREPROSTINIL
     Dosage: 18.75 MG, Q8H
     Route: 048
  8. ORENITRAM [Suspect]
     Active Substance: TREPROSTINIL
     Indication: PULMONARY ARTERIAL HYPERTENSION
     Dosage: UNK
     Route: 048
     Dates: start: 20201125
  9. ORENITRAM [Suspect]
     Active Substance: TREPROSTINIL
     Indication: PULMONARY ARTERIAL HYPERTENSION
     Dosage: UNK
     Route: 048
  10. WARFARIN SODIUM. [Concomitant]
     Active Substance: WARFARIN SODIUM
     Indication: PRODUCT USED FOR UNKNOWN INDICATION
     Dosage: UNK
     Route: 065

REACTIONS (10)
  - Abdominal discomfort [Unknown]
  - Nausea [Recovering/Resolving]
  - Pollakiuria [Unknown]
  - Malaise [Unknown]
  - Depression [Unknown]
  - Dizziness [Unknown]
  - Dyspnoea exertional [Unknown]
  - Palpitations [Unknown]
  - Headache [Recovering/Resolving]
  - Apathy [Unknown]
